FAERS Safety Report 8556864-3 (Version None)
Quarter: 2012Q2

REPORT INFORMATION
  Report Type: 
  Country: None (occurrence: None)
  Receive Date: 20120418
  Receipt Date: 20091201
  Transmission Date: 20120825
  Serious: Yes (Other)
  Sender: FDA-Public Use
  Company Number: PHEH2008US00628

PATIENT
  Age: 67 Year
  Sex: Female
  Weight: 86.2 kg

DRUGS (29)
  1. INSULIN (INSULIN) [Concomitant]
  2. NOVOLOG [Concomitant]
  3. PERCOCET [Concomitant]
  4. VIVELLE [Suspect]
     Indication: MENOPAUSE
     Dosage: 0.075
     Dates: end: 20020101
  5. LEVOTHYROXINE SODIUM [Concomitant]
  6. MEGESTROL ACETATE [Concomitant]
  7. KEFLEX [Concomitant]
  8. ESTRADERM [Suspect]
     Dates: start: 19980101, end: 20020101
  9. SYNTHROID [Concomitant]
  10. PREMPRO [Suspect]
  11. PREVACID [Concomitant]
  12. ESTRADERM [Suspect]
     Indication: MENOPAUSE
     Dosage: 0.05-0.1 PATCH, TRANSDERMAL
     Route: 062
     Dates: start: 19830318, end: 20020101
  13. PROVERA [Suspect]
     Indication: MENOPAUSE
     Dosage: 10,2.5,5
     Dates: start: 19830101, end: 20020301
  14. CLIMARA [Suspect]
     Indication: MENOPAUSE
     Dosage: 0.1 MG
     Dates: start: 19980801, end: 19981101
  15. WELLBUTRIN SR [Concomitant]
  16. HYDROCHLOROTHIAZIDE [Concomitant]
  17. AMARYL [Concomitant]
  18. VIVELLE-DOT [Suspect]
     Indication: MENOPAUSE
     Dosage: 0.075
     Dates: start: 20011217, end: 20020211
  19. PREMARIN [Suspect]
     Indication: MENOPAUSE
     Dosage: 0.125-0.625
     Dates: start: 19830101, end: 19920101
  20. METFFORMIN HYDROCHLORIDE [Concomitant]
  21. PRINIVIL [Concomitant]
  22. LIPITOR [Concomitant]
  23. ESTRACE [Suspect]
     Indication: MENOPAUSE
     Dates: start: 19950807, end: 19950807
  24. GLUCOPHAGE [Concomitant]
  25. NEURONTIN [Concomitant]
  26. ESTRACE [Suspect]
     Indication: MENOPAUSE
     Dosage: 0.1 MG
     Dates: start: 19921105, end: 20030318
  27. PROZAC [Concomitant]
  28. LYRICA [Concomitant]
  29. LANTUS [Concomitant]

REACTIONS (9)
  - MAMMOGRAM ABNORMAL [None]
  - MASTECTOMY [None]
  - BREAST CANCER [None]
  - BIOPSY [None]
  - OESTROGEN RECEPTOR ASSAY POSITIVE [None]
  - BREAST MASS [None]
  - HOT FLUSH [None]
  - SMEAR CERVIX ABNORMAL [None]
  - LYMPHOEDEMA [None]
